FAERS Safety Report 8314919-2 (Version None)
Quarter: 2012Q2

REPORT INFORMATION
  Report Type: 
  Country: None (occurrence: None)
  Receive Date: 20120426
  Receipt Date: 20120418
  Transmission Date: 20120825
  Serious: Yes (Hospitalization)
  Sender: FDA-Public Use
  Company Number: CA-JNJFOC-20120407945

PATIENT
  Sex: Male
  Weight: 93 kg

DRUGS (5)
  1. PERCOCET [Concomitant]
     Dosage: DOSE: 35/325 MG
     Route: 048
  2. ALL OTHER THERAPEUTICS [Concomitant]
     Route: 048
  3. REMICADE [Suspect]
     Indication: PSORIASIS
     Route: 042
     Dates: start: 20090602
  4. HYDROMORPHONE HCL [Concomitant]
     Route: 048
  5. LAXATIVE [Concomitant]
     Route: 048

REACTIONS (2)
  - ROAD TRAFFIC ACCIDENT [None]
  - LOWER LIMB FRACTURE [None]
